FAERS Safety Report 9026180 (Version 2)
Quarter: 2013Q1

REPORT INFORMATION
  Report Type: Spontaneous
  Country: US (occurrence: None)
  Receive Date: 20121207
  Receipt Date: 20130116
  Transmission Date: 20140127
  Serious: Yes (Death)
  Sender: FDA-Public Use
  Company Number: UTC-026227

PATIENT
  Age: 57 Year
  Sex: Female

DRUGS (15)
  1. REMODULIN (10 MILLIGRAM/MILLILITERS, INJECTION FOR INFUSION) (TREPROSTINIL SODIUM) [Suspect]
     Indication: PULMONARY ARTERIAL HYPERTENSION
     Dosage: 391.68 UG/KG (0.272 UG/KG,1 IN 1 MIN), INTRAVENOUS
     Route: 042
     Dates: start: 200705
  2. ADCIRCA (TADALAFIL) [Concomitant]
  3. ASCORBIC ACID [Concomitant]
  4. BUMEX (BUMETANIDE) [Concomitant]
  5. VITAMIN B-12 (CYANOCOBALAMIN) [Concomitant]
  6. DIGOXIN [Concomitant]
  7. FERROUS SULFATE [Concomitant]
  8. FOLIC ACID [Concomitant]
  9. OXYGEN [Concomitant]
  10. OXYMETAZOLINE [Concomitant]
  11. KLOR-CON (POTASSIUM CHLORIDE) [Concomitant]
  12. PHENERGAN (PROMETHAZINE) [Concomitant]
  13. ALDACTONE (SPIRONOLACTONE) [Concomitant]
  14. ALBUTEROL (SALBUTAMOL) [Concomitant]
  15. SPIRIVA (TIOTROPIUM BROMIDE) [Concomitant]

REACTIONS (1)
  - Cardiac failure [None]
